FAERS Safety Report 17047047 (Version 2)
Quarter: 2019Q4

REPORT INFORMATION
  Report Type: Spontaneous
  Country: FR (occurrence: FR)
  Receive Date: 20191119
  Receipt Date: 20191125
  Transmission Date: 20200122
  Serious: Yes (Other)
  Sender: FDA-Public Use
  Company Number: FR-ACCORD-160614

PATIENT
  Age: 66 Year
  Sex: Female

DRUGS (1)
  1. METHOTREXATE. [Suspect]
     Active Substance: METHOTREXATE
     Indication: FOREIGN BODY REACTION
     Dosage: INITIALLY RECEIVED 10MG, THEN 15MG, WAS WEEKLY ADMINISTERED
     Route: 048

REACTIONS (2)
  - Off label use [Unknown]
  - Hepatocellular injury [Unknown]
